FAERS Safety Report 17501735 (Version 4)
Quarter: 2020Q2

REPORT INFORMATION
  Report Type: Spontaneous
  Country: US (occurrence: US)
  Receive Date: 20200305
  Receipt Date: 20200427
  Transmission Date: 20200713
  Serious: No
  Sender: FDA-Public Use
  Company Number: US-PFIZER INC-2020095261

PATIENT
  Age: 55 Year
  Sex: Female
  Weight: 84.37 kg

DRUGS (1)
  1. ADVIL LIQUI-GELS [Suspect]
     Active Substance: IBUPROFEN
     Indication: TOOTHACHE
     Dosage: 4 DF, ONCE DAILY (AT A TIME)
     Dates: start: 202002, end: 2020

REACTIONS (5)
  - Extra dose administered [Unknown]
  - Product leakage [Unknown]
  - Product physical issue [Unknown]
  - Pain [Unknown]
  - Poor quality product administered [Unknown]

NARRATIVE: CASE EVENT DATE: 2020
